FAERS Safety Report 22664433 (Version 3)
Quarter: 2023Q4

REPORT INFORMATION
  Report Type: Spontaneous
  Country: US (occurrence: US)
  Receive Date: 20230703
  Receipt Date: 20231115
  Transmission Date: 20240109
  Serious: No
  Sender: FDA-Public Use
  Company Number: US-PFIZER INC-PV202300111328

PATIENT
  Age: 68 Year
  Sex: Female

DRUGS (1)
  1. CIBINQO [Suspect]
     Active Substance: ABROCITINIB
     Dosage: UNK
     Route: 048

REACTIONS (7)
  - Anxiety [Unknown]
  - Insomnia [Unknown]
  - Pruritus [Unknown]
  - Stress [Unknown]
  - Platelet count abnormal [Unknown]
  - Rash [Unknown]
  - Illness [Unknown]

NARRATIVE: CASE EVENT DATE: 20230717
